FAERS Safety Report 14129311 (Version 1)
Quarter: 2017Q4

REPORT INFORMATION
  Report Type: Spontaneous
  Country: GB (occurrence: GB)
  Receive Date: 20171026
  Receipt Date: 20171026
  Transmission Date: 20180321
  Serious: Yes (Death)
  Sender: FDA-Public Use
  Company Number: GB-TEVA-817981ACC

PATIENT
  Age: 41 Year
  Sex: Male

DRUGS (13)
  1. MIRTAZAPINE. [Concomitant]
     Active Substance: MIRTAZAPINE
  2. TEMAZEPAM. [Suspect]
     Active Substance: TEMAZEPAM
  3. COCAINE [Suspect]
     Active Substance: COCAINE
  4. ALCOHOL. [Concomitant]
     Active Substance: ALCOHOL
  5. ZOPICLONE [Suspect]
     Active Substance: ZOPICLONE
  6. LEVAMISOLE [Concomitant]
     Active Substance: LEVAMISOLE
  7. DIAZEPAM. [Suspect]
     Active Substance: DIAZEPAM
  8. METHADONE [Suspect]
     Active Substance: METHADONE HYDROCHLORIDE
  9. ZAPONEX [Suspect]
     Active Substance: CLOZAPINE
     Indication: SCHIZOPHRENIA
     Route: 048
     Dates: start: 20130919, end: 20160108
  10. ALPRAZOLAM. [Suspect]
     Active Substance: ALPRAZOLAM
  11. ZAPONEX [Suspect]
     Active Substance: CLOZAPINE
     Indication: SCHIZOPHRENIA
     Route: 048
     Dates: start: 20160608, end: 20170711
  12. OXAZEPAM. [Suspect]
     Active Substance: OXAZEPAM
  13. SERTRALINE [Concomitant]
     Active Substance: SERTRALINE HYDROCHLORIDE

REACTIONS (2)
  - Toxicity to various agents [Fatal]
  - Neutrophil count increased [Not Recovered/Not Resolved]

NARRATIVE: CASE EVENT DATE: 20170704
